FAERS Safety Report 9008231 (Version 1)
Quarter: 2013Q1

REPORT INFORMATION
  Report Type: Spontaneous
  Country: NL (occurrence: NL)
  Receive Date: 20130111
  Receipt Date: 20130111
  Transmission Date: 20140127
  Serious: Yes (Hospitalization, Other)
  Sender: FDA-Public Use
  Company Number: PHHY2013NL002356

PATIENT
  Sex: Male

DRUGS (1)
  1. ZOMETA [Suspect]
     Indication: LUNG CANCER METASTATIC
     Dosage: 4 MG / 100 ML / 1 EVERY 28 DAYS
     Route: 042
     Dates: end: 20121210

REACTIONS (5)
  - Headache [Unknown]
  - Pain in extremity [Unknown]
  - Terminal state [Unknown]
  - Metastases to central nervous system [Unknown]
  - Metastases to bone [Unknown]
